FAERS Safety Report 7298750-5 (Version None)
Quarter: 2011Q1

REPORT INFORMATION
  Report Type: 
  Country: None (occurrence: None)
  Receive Date: 20110217
  Receipt Date: 20110214
  Transmission Date: 20110831
  Serious: Yes (Other)
  Sender: FDA-Public Use
  Company Number: US-JNJFOC-20110105461

PATIENT
  Sex: Female
  Weight: 63.5 kg

DRUGS (3)
  1. VITAMIN D [Concomitant]
     Route: 048
  2. SYNTHROID [Concomitant]
     Indication: HYPOTHYROIDISM
     Route: 048
  3. ELMIRON [Suspect]
     Indication: CYSTITIS INTERSTITIAL
     Dosage: TOOK FOR APPROXIMATELY 3 WEEKS 3OR 4 MONTHS AGO
     Route: 048

REACTIONS (12)
  - EPISTAXIS [None]
  - EYE PRURITUS [None]
  - ABDOMINAL DISTENSION [None]
  - SKIN EXFOLIATION [None]
  - PRURITUS GENITAL [None]
  - DEAFNESS [None]
  - DERMATITIS PSORIASIFORM [None]
  - ALOPECIA [None]
  - RASH [None]
  - NIGHT SWEATS [None]
  - DYSPNOEA [None]
  - FATIGUE [None]
